FAERS Safety Report 7555341-6 (Version None)
Quarter: 2011Q2

REPORT INFORMATION
  Report Type: 
  Country: None (occurrence: None)
  Receive Date: 20110617
  Receipt Date: 20110606
  Transmission Date: 20111010
  Serious: Yes (Other)
  Sender: FDA-Public Use
  Company Number: PHHY2011US49893

PATIENT
  Age: 44 Year
  Sex: Male
  Weight: 113.38 kg

DRUGS (2)
  1. FANAPT [Suspect]
  2. CLOZAPINE [Suspect]

REACTIONS (2)
  - CARDIOVASCULAR DISORDER [None]
  - MYOCARDIAL INFARCTION [None]
